FAERS Safety Report 9571219 (Version 2)
Quarter: 2014Q1

REPORT INFORMATION
  Report Type: Spontaneous
  Country: CA (occurrence: CA)
  Receive Date: 20131001
  Receipt Date: 20140324
  Transmission Date: 20141002
  Serious: Yes (Other)
  Sender: FDA-Public Use
  Company Number: CA-AMGEN-CANSP2013067835

PATIENT
  Age: 84 Year
  Sex: Female

DRUGS (1)
  1. PROLIA [Suspect]
     Indication: OSTEOPOROSIS POSTMENOPAUSAL
     Dosage: 60 MG, Q6MO
     Route: 065
     Dates: start: 20121010

REACTIONS (5)
  - Arrhythmia [Unknown]
  - Optic nerve disorder [Unknown]
  - Cardiac disorder [Unknown]
  - Tooth disorder [Unknown]
  - Pain in extremity [Unknown]
